FAERS Safety Report 6567647-8 (Version None)
Quarter: 2010Q1

REPORT INFORMATION
  Report Type: 
  Country: None (occurrence: None)
  Receive Date: 20100202
  Receipt Date: 20100125
  Transmission Date: 20100710
  Serious: Yes (Other)
  Sender: FDA-Public Use
  Company Number: DE-BRISTOL-MYERS SQUIBB COMPANY-14948046

PATIENT
  Age: 24 Year
  Sex: Male

DRUGS (6)
  1. STAVUDINE [Suspect]
     Indication: ANTIRETROVIRAL THERAPY
  2. CO-TRIMOXAZOLE [Suspect]
     Indication: PNEUMOCYSTIS JIROVECI PNEUMONIA
     Dosage: 1 DOSAGEFORM = 20MG TRIMETHOPRIM PER KG
     Route: 042
  3. PREDNISOLONE [Suspect]
     Indication: PNEUMOCYSTIS JIROVECI PNEUMONIA
  4. NELFINAVIR MESYLATE [Suspect]
     Indication: ANTIRETROVIRAL THERAPY
  5. LAMIVUDINE [Suspect]
     Indication: ANTIRETROVIRAL THERAPY
  6. GANCICLOVIR [Concomitant]
     Route: 042

REACTIONS (8)
  - CHOLANGITIS [None]
  - CHOLESTASIS [None]
  - CONVULSION [None]
  - CYTOMEGALOVIRUS VIRAEMIA [None]
  - HEPATITIS [None]
  - HEPATOTOXICITY [None]
  - OESOPHAGEAL CANDIDIASIS [None]
  - RESPIRATORY FAILURE [None]
